FAERS Safety Report 8803754 (Version 1)
Quarter: 2012Q4

REPORT INFORMATION
  Report Type: 
  Country: US (occurrence: US)
  Receive Date: 20120924
  Receipt Date: 20120924
  Transmission Date: 20130627
  Serious: Yes (Other)
  Sender: FDA-Public Use
  Company Number: US-SANOFI-AVENTIS-2012SA067709

PATIENT
  Age: 5 Year
  Sex: Male

DRUGS (1)
  1. ALLEGRA [Suspect]
     Indication: SEASONAL ALLERGY
     Route: 048

REACTIONS (3)
  - Pharyngitis streptococcal [Unknown]
  - Scarlet fever [Unknown]
  - Type 1 diabetes mellitus [Unknown]
